FAERS Safety Report 9011214 (Version 1)
Quarter: 2013Q1

REPORT INFORMATION
  Report Type: Spontaneous
  Country: US (occurrence: US)
  Receive Date: 20130109
  Receipt Date: 20130109
  Transmission Date: 20140127
  Serious: Yes (Death)
  Sender: FDA-Public Use
  Company Number: US-ARROW-2012-23123

PATIENT
  Age: 46 Year
  Sex: Female

DRUGS (5)
  1. LISINOPRIL (WATSON LABORATORIES) [Suspect]
     Indication: PRODUCT USED FOR UNKNOWN INDICATION
     Dosage: 40 MG; X1
     Route: 048
     Dates: start: 20121228
  2. KALBITOR [Suspect]
     Indication: HEREDITARY ANGIOEDEMA
     Dosage: UNK
     Dates: start: 20120609, end: 20120610
  3. KALBITOR [Suspect]
     Dosage: UNK
     Dates: start: 20120530, end: 20120530
  4. CLONAZEPAM [Concomitant]
     Indication: PRODUCT USED FOR UNKNOWN INDICATION
     Dosage: UNK
     Route: 065
  5. CINRYZE [Concomitant]
     Indication: PRODUCT USED FOR UNKNOWN INDICATION
     Dosage: UNK
     Route: 065

REACTIONS (4)
  - Accidental overdose [Fatal]
  - Cardiac disorder [Fatal]
  - Hypotension [Fatal]
  - Hypoxia [Fatal]
